FAERS Safety Report 22943642 (Version 4)
Quarter: 2024Q4

REPORT INFORMATION
  Report Type: Spontaneous
  Country: US (occurrence: US)
  Receive Date: 20230914
  Receipt Date: 20241210
  Transmission Date: 20250115
  Serious: No
  Sender: PFIZER
  Company Number: US-PFIZER INC-PV202300033759

PATIENT
  Age: 66 Year
  Sex: Female

DRUGS (2)
  1. IBRANCE [Suspect]
     Active Substance: PALBOCICLIB
     Dosage: 125 MG, CYCLIC DAILY FOR 21 DAYS, DAYS 1-21, EVERY 28 DAYS
     Route: 048
     Dates: start: 20200625
  2. FULVESTRANT [Concomitant]
     Active Substance: FULVESTRANT
     Dosage: EVERY 4 WEEKS
     Dates: start: 20200625

REACTIONS (1)
  - Neoplasm progression [Unknown]
